FAERS Safety Report 8033262-2 (Version None)
Quarter: 2012Q1

REPORT INFORMATION
  Report Type: 
  Country: None (occurrence: None)
  Receive Date: 20120110
  Receipt Date: 20120104
  Transmission Date: 20120608
  Serious: Yes (Hospitalization)
  Sender: FDA-Public Use
  Company Number: FR-PFIZER INC-2012001659

PATIENT
  Age: 56 Year
  Sex: Female

DRUGS (4)
  1. CLINDAMYCIN HCL [Suspect]
     Dosage: 300 MG, 3X/DAY
     Route: 048
     Dates: start: 20110601, end: 20110801
  2. LEVOFLOXACIN [Suspect]
     Dosage: 700 MG DAILY
     Route: 048
     Dates: end: 20110805
  3. NEXIUM [Concomitant]
  4. OXACILLIN [Suspect]
     Dosage: UNK
     Route: 042
     Dates: start: 20110801, end: 20110808

REACTIONS (1)
  - PANCYTOPENIA [None]
